FAERS Safety Report 17029522 (Version 1)
Quarter: 2019Q4

REPORT INFORMATION
  Report Type: Spontaneous
  Country: CN (occurrence: CN)
  Receive Date: 20191114
  Receipt Date: 20191114
  Transmission Date: 20200122
  Serious: Yes (Other)
  Sender: FDA-Public Use
  Company Number: CN-ROCHE-2461775

PATIENT
  Age: 71 Year
  Sex: Male

DRUGS (14)
  1. CLARITHROMYCIN LACTOBIONATE [Concomitant]
     Active Substance: CLARITHROMYCIN LACTOBIONATE
     Indication: DIFFUSE LARGE B-CELL LYMPHOMA
     Dosage: DAY 1
     Route: 065
     Dates: start: 20190610, end: 20190615
  2. METHOTREXATE. [Concomitant]
     Active Substance: METHOTREXATE
     Dosage: DAY 2
     Route: 065
     Dates: start: 20190814, end: 20190817
  3. CYCLOPHOSPHAMIDE. [Concomitant]
     Active Substance: CYCLOPHOSPHAMIDE
     Indication: DIFFUSE LARGE B-CELL LYMPHOMA
     Dosage: DAY 1
     Route: 065
     Dates: start: 20190610, end: 20190615
  4. CYTARABINE. [Concomitant]
     Active Substance: CYTARABINE
     Dosage: DAY 3
     Route: 065
     Dates: start: 20190814, end: 20190817
  5. DEXAMETHASONE. [Concomitant]
     Active Substance: DEXAMETHASONE
     Dosage: DAY 1-4
     Route: 065
     Dates: start: 20190708, end: 20190711
  6. MABTHERA [Suspect]
     Active Substance: RITUXIMAB
     Dosage: DAY 1
     Route: 065
     Dates: start: 20190708, end: 20190711
  7. MABTHERA [Suspect]
     Active Substance: RITUXIMAB
     Dosage: DAY 1
     Route: 065
     Dates: start: 20190814, end: 20190817
  8. DEXAMETHASONE. [Concomitant]
     Active Substance: DEXAMETHASONE
     Indication: DIFFUSE LARGE B-CELL LYMPHOMA
     Dosage: DAY 1-5
     Route: 065
     Dates: start: 20190610, end: 20190615
  9. VINDESINE [Concomitant]
     Active Substance: VINDESINE
     Indication: DIFFUSE LARGE B-CELL LYMPHOMA
     Dosage: DAY 1
     Route: 065
     Dates: start: 20190610, end: 20190615
  10. CLARITHROMYCIN LACTOBIONATE [Concomitant]
     Active Substance: CLARITHROMYCIN LACTOBIONATE
     Dosage: DAY 2
     Route: 065
     Dates: start: 20190610, end: 20190615
  11. METHOTREXATE. [Concomitant]
     Active Substance: METHOTREXATE
     Indication: DIFFUSE LARGE B-CELL LYMPHOMA
     Dosage: DAY 2
     Route: 065
     Dates: start: 20190708, end: 20190711
  12. DEXAMETHASONE. [Concomitant]
     Active Substance: DEXAMETHASONE
     Dosage: DAY 1-4
     Route: 065
     Dates: start: 20190814, end: 20190817
  13. MABTHERA [Suspect]
     Active Substance: RITUXIMAB
     Indication: DIFFUSE LARGE B-CELL LYMPHOMA
     Dosage: DAY 0
     Route: 065
     Dates: start: 20190610, end: 20190615
  14. CYTARABINE. [Concomitant]
     Active Substance: CYTARABINE
     Indication: DIFFUSE LARGE B-CELL LYMPHOMA
     Dosage: DAY 3
     Route: 065
     Dates: start: 20190708, end: 20190711

REACTIONS (1)
  - Cancer pain [Recovering/Resolving]
